FAERS Safety Report 16923012 (Version 4)
Quarter: 2024Q4

REPORT INFORMATION
  Report Type: Spontaneous
  Country: GB (occurrence: GB)
  Receive Date: 20191016
  Receipt Date: 20241123
  Transmission Date: 20250115
  Serious: Yes (Other)
  Sender: TEVA
  Company Number: GB-EMA-DD-20190930-SHUKLA_V-102108

PATIENT
  Age: 32 Year
  Sex: Female

DRUGS (36)
  1. RISPERIDONE [Suspect]
     Active Substance: RISPERIDONE
     Indication: Hallucination, auditory
     Dosage: DURATION : 11 YEARS
     Route: 065
     Dates: start: 2006, end: 20171205
  2. HALDOL [Suspect]
     Active Substance: HALOPERIDOL
     Indication: Drug ineffective
     Dosage: UNK, DURATION: 11 YEARS
     Route: 065
     Dates: start: 2006, end: 20171205
  3. HALDOL [Suspect]
     Active Substance: HALOPERIDOL
     Indication: Drug ineffective
     Route: 065
     Dates: start: 2019
  4. RISPERDAL [Suspect]
     Active Substance: RISPERIDONE
     Indication: Schizophrenia
     Dosage: UNK (UNK, (EVERY)); DURATION: 11 YEARS
     Route: 065
     Dates: start: 2006, end: 20171205
  5. ZUCLOPENTHIXOL [Suspect]
     Active Substance: ZUCLOPENTHIXOL
     Indication: Hallucination, auditory
     Dosage: DURATION : 11 YEARS
     Route: 065
     Dates: start: 2006, end: 20171205
  6. ZUCLOPENTHIXOL [Suspect]
     Active Substance: ZUCLOPENTHIXOL
     Indication: Hallucination, auditory
     Dosage: DURATION: 11 YEARS
     Route: 065
     Dates: start: 2006, end: 20171205
  7. ZUCLOPENTHIXOL [Suspect]
     Active Substance: ZUCLOPENTHIXOL
     Indication: Hallucination, auditory
     Dosage: DURATION: 11 YEARS
     Route: 065
     Dates: start: 2006, end: 20170512
  8. ZUCLOPENTHIXOL [Suspect]
     Active Substance: ZUCLOPENTHIXOL
     Indication: Hallucination, auditory
     Dosage: DURATION: 4191 DAYS
     Route: 065
     Dates: start: 20060615, end: 20171205
  9. ABILIFY [Suspect]
     Active Substance: ARIPIPRAZOLE
     Indication: Hallucination, auditory
     Dosage: UNK
     Route: 065
     Dates: start: 2019
  10. HALOPERIDOL [Suspect]
     Active Substance: HALOPERIDOL
     Indication: Hallucination, auditory
     Route: 065
     Dates: start: 2019
  11. OLANZAPINE [Suspect]
     Active Substance: OLANZAPINE
     Indication: Drug ineffective
     Dosage: UNK
     Route: 048
  12. QUETIAPINE [Suspect]
     Active Substance: QUETIAPINE
     Indication: Product used for unknown indication
     Dosage: UNK
     Route: 048
  13. QUETIAPINE [Suspect]
     Active Substance: QUETIAPINE
     Indication: Product used for unknown indication
     Route: 065
  14. CLOZARIL [Suspect]
     Active Substance: CLOZAPINE
     Indication: Schizoaffective disorder
     Dosage: UNK, DURATION : 24576 HOURS
     Route: 048
     Dates: start: 20150215, end: 20171205
  15. CLOZARIL [Suspect]
     Active Substance: CLOZAPINE
     Indication: Schizoaffective disorder
     Dosage: DURATION : 11 YEARS
     Route: 048
     Dates: start: 2006, end: 20171205
  16. CLOZARIL [Suspect]
     Active Substance: CLOZAPINE
     Indication: Schizoaffective disorder
     Dosage: DURATION : 13 YEARS
     Route: 048
     Dates: start: 20050215, end: 20171205
  17. CLOZARIL [Suspect]
     Active Substance: CLOZAPINE
     Indication: Schizoaffective disorder
     Dosage: UNK
     Route: 048
     Dates: start: 2019
  18. CLOZARIL [Suspect]
     Active Substance: CLOZAPINE
     Indication: Schizoaffective disorder
     Dosage: UNK, DURATION: 1 YEARS
     Route: 048
     Dates: start: 20180205, end: 2019
  19. CLOZARIL [Suspect]
     Active Substance: CLOZAPINE
     Indication: Schizoaffective disorder
     Dosage: UNK
     Route: 048
     Dates: start: 201909
  20. CLOZARIL [Suspect]
     Active Substance: CLOZAPINE
     Indication: Schizoaffective disorder
     Route: 048
     Dates: start: 2019
  21. CLOZARIL [Suspect]
     Active Substance: CLOZAPINE
     Indication: Schizoaffective disorder
     Dosage: DURATION: 25 YEARS
     Route: 048
     Dates: start: 201909
  22. CLOZARIL [Suspect]
     Active Substance: CLOZAPINE
     Indication: Schizoaffective disorder
     Dosage: DURATION: 4676 DAYS
     Route: 048
     Dates: start: 20050215, end: 20171205
  23. CLOZARIL [Suspect]
     Active Substance: CLOZAPINE
     Indication: Schizoaffective disorder
     Dosage: DURATION: 8760 HOURS
     Route: 048
     Dates: start: 20181205, end: 20191205
  24. CLOZARIL [Suspect]
     Active Substance: CLOZAPINE
     Indication: Schizoaffective disorder
     Dosage: DURATION: 1 YEARS
     Route: 048
     Dates: start: 20180205, end: 2019
  25. CLOZARIL [Suspect]
     Active Substance: CLOZAPINE
     Indication: Schizoaffective disorder
     Dosage: DURATION: 16032 HOURS
     Route: 048
     Dates: start: 20180205, end: 20191205
  26. CLOZARIL [Suspect]
     Active Substance: CLOZAPINE
     Indication: Schizoaffective disorder
     Dosage: DURATION: 11 YEARS
     Route: 048
     Dates: start: 2006, end: 20171205
  27. CLOZARIL [Suspect]
     Active Substance: CLOZAPINE
     Indication: Schizoaffective disorder
     Dosage: DURATION: 11 YEARS
     Route: 048
     Dates: start: 20180205
  28. CLOZARIL [Suspect]
     Active Substance: CLOZAPINE
     Indication: Schizoaffective disorder
     Route: 048
     Dates: start: 20050215
  29. CLOZAPINE [Suspect]
     Active Substance: CLOZAPINE
     Indication: Schizophrenia
     Dosage: UNK, UNK (EVERY)
     Route: 065
     Dates: start: 2019
  30. CLOZAPINE [Suspect]
     Active Substance: CLOZAPINE
     Indication: Schizophrenia
     Dosage: DURATION: 1 YEARS
     Route: 048
     Dates: start: 20180205, end: 2019
  31. CLOZAPINE [Suspect]
     Active Substance: CLOZAPINE
     Indication: Schizophrenia
     Dosage: DURATION: 4676 DAYS, UNK, QD UNK UNK, QD, (EVERY)
     Route: 048
     Dates: start: 20050215, end: 20171205
  32. CLOZAPINE [Suspect]
     Active Substance: CLOZAPINE
     Indication: Schizophrenia
     Dosage: UNKNOWN,UNKNOWN,UNKNOWN,UNKNOWN,UNK
     Route: 048
     Dates: start: 201909
  33. CLOZAPINE [Suspect]
     Active Substance: CLOZAPINE
     Indication: Schizophrenia
     Dosage: DURATION: 8760 HOURS
     Route: 048
     Dates: start: 20180205, end: 20190205
  34. CLOZAPINE [Suspect]
     Active Substance: CLOZAPINE
     Indication: Schizophrenia
     Dosage: DURATION: 25 YEARS
     Route: 048
     Dates: start: 2006, end: 20171205
  35. AMISULPRIDE [Suspect]
     Active Substance: AMISULPRIDE
     Indication: Hallucination, auditory
     Route: 048
     Dates: start: 20050215
  36. ARIPIPRAZOLE [Suspect]
     Active Substance: ARIPIPRAZOLE
     Indication: Hallucination, auditory
     Dosage: ARIPIPRAZOLE SANDOZ
     Route: 065
     Dates: start: 2019

REACTIONS (24)
  - Neutropenia [Recovered/Resolved]
  - Product use in unapproved indication [Unknown]
  - Schizophrenia [Not Recovered/Not Resolved]
  - Drug ineffective [Unknown]
  - Schizophrenia [Not Recovered/Not Resolved]
  - Suicidal ideation [Unknown]
  - Refusal of examination [Unknown]
  - Leukopenia [Recovered/Resolved]
  - Malaise [Unknown]
  - Eosinophil count decreased [Recovered/Resolved]
  - Mental impairment [Not Recovered/Not Resolved]
  - Drug ineffective [Unknown]
  - Neutropenia [Recovered/Resolved]
  - Neutropenia [Recovered/Resolved]
  - Gastroenteritis [Unknown]
  - Eating disorder [Unknown]
  - Eating disorder [Unknown]
  - Neutropenia [Recovered/Resolved]
  - Food poisoning [Unknown]
  - Intentional product misuse [Unknown]
  - Drug abuse [Unknown]
  - Malaise [Not Recovered/Not Resolved]
  - Schizophrenia [Not Recovered/Not Resolved]
  - Medication error [Unknown]

NARRATIVE: CASE EVENT DATE: 20170101
